FAERS Safety Report 8521531-9 (Version None)
Quarter: 2012Q3

REPORT INFORMATION
  Report Type: 
  Country: None (occurrence: None)
  Receive Date: 20120719
  Receipt Date: 20120711
  Transmission Date: 20120928
  Serious: Yes (Hospitalization)
  Sender: FDA-Public Use
  Company Number: PHHO2011US13500

PATIENT
  Sex: Male
  Weight: 92.7 kg

DRUGS (2)
  1. GILENYA [Suspect]
     Indication: MULTIPLE SCLEROSIS
     Dosage: 0.5 MG, QD
     Route: 048
     Dates: start: 20110615, end: 20110817
  2. LORAZEPAM [Concomitant]

REACTIONS (2)
  - METABOLIC ENCEPHALOPATHY [None]
  - HYPERTENSIVE CRISIS [None]
